FAERS Safety Report 7312352-3 (Version None)
Quarter: 2011Q1

REPORT INFORMATION
  Report Type: 
  Country: None (occurrence: None)
  Receive Date: 20110224
  Receipt Date: 20110214
  Transmission Date: 20110831
  Serious: Yes (Other)
  Sender: FDA-Public Use
  Company Number: US-ELI_LILLY_AND_COMPANY-US201102004302

PATIENT
  Sex: Female

DRUGS (13)
  1. PREDNISONE [Concomitant]
  2. NORCO [Concomitant]
     Indication: PAIN
     Dosage: 325 MG, UNK
  3. MULTIVITAMIN [Concomitant]
     Indication: EYE DISORDER
  4. ASPIRIN [Concomitant]
     Dosage: UNK, DAILY (1/D)
  5. CYCLOBENZAPRINE [Concomitant]
     Indication: MUSCLE RELAXANT THERAPY
  6. LEVOTHYROXINE SODIUM [Concomitant]
     Indication: THYROID THERAPY
  7. MULTI-VITAMIN [Concomitant]
  8. VERAPAMIL [Concomitant]
     Indication: BLOOD PRESSURE
  9. MICARDIS [Concomitant]
     Indication: BLOOD PRESSURE
  10. FORTEO [Suspect]
     Indication: OSTEOPOROSIS
     Dosage: 20 UG, DAILY (1/D)
     Dates: start: 20101001
  11. DOXAZOSIN [Concomitant]
     Indication: BLOOD PRESSURE
  12. LOVAZA [Concomitant]
  13. ALLOPURINOL [Concomitant]
     Dosage: 300 MG, UNK

REACTIONS (2)
  - LYMPHOMA [None]
  - MEMORY IMPAIRMENT [None]
